FAERS Safety Report 17122039 (Version 1)
Quarter: 2019Q4

REPORT INFORMATION
  Report Type: Spontaneous
  Country: US (occurrence: US)
  Receive Date: 20191114
  Receipt Date: 20191114
  Transmission Date: 20200122
  Serious: No
  Sender: FDA-Public Use
  Company Number: None

PATIENT
  Sex: Female

DRUGS (1)
  1. CAPECITABINE 500MG [Suspect]
     Active Substance: CAPECITABINE
     Indication: RECTAL CANCER
     Route: 048
     Dates: start: 20190912

REACTIONS (6)
  - Burning sensation [None]
  - Poor quality sleep [None]
  - Hyperkeratosis [None]
  - Skin fissures [None]
  - Therapy change [None]
  - Hypoaesthesia [None]
